FAERS Safety Report 5621826-2 (Version None)
Quarter: 2008Q1

REPORT INFORMATION
  Report Type: 
  Country: None (occurrence: None)
  Receive Date: 20080114
  Receipt Date: 20070619
  Transmission Date: 20080703
  Serious: Yes (Hospitalization)
  Sender: FDA-Public Use
  Company Number: A03200704118

PATIENT
  Age: 78 Year
  Sex: Male
  Weight: 53.51 kg

DRUGS (25)
  1. PLAVIX [Suspect]
     Indication: CORONARY ARTERIAL STENT INSERTION
     Dosage: 75 MG QD -ORAL
     Route: 048
     Dates: start: 20061101
  2. ASPIRIN [Suspect]
     Indication: CORONARY ARTERIAL STENT INSERTION
     Dosage: 325 MG QD -ORAL
     Route: 048
     Dates: start: 20061101, end: 20070101
  3. ASPIRIN [Suspect]
     Indication: CORONARY ARTERIAL STENT INSERTION
     Dosage: 81 MG QD -ORAL
     Route: 048
     Dates: start: 20070101
  4. ISOSORBIDE DINITRATE [Suspect]
  5. ISOSORBIDE - 30 MG [Suspect]
     Dosage: 15 MG QD
  6. LOSARTAN POTASSIUM [Concomitant]
  7. ATORVASTATIN CALCIUM [Concomitant]
  8. METOPROLOL SUCCINATE [Concomitant]
  9. RANITIDINE [Concomitant]
  10. COSOPT [Concomitant]
  11. BRINZOLAMIDE [Concomitant]
  12. TAMSULOSIN HCL [Concomitant]
  13. TERAZOSIN HCL [Concomitant]
  14. BIMATOPROST [Concomitant]
  15. VITAMINS [Concomitant]
  16. DARBEPOETIN ALFA [Concomitant]
  17. IRON [Concomitant]
  18. FOLIC ACID [Concomitant]
  19. VITAMIN B1 [Concomitant]
  20. VITAMIN B-12 [Concomitant]
  21. VITAMIN B-12 [Concomitant]
  22. VITAMIN B6 [Concomitant]
  23. VITAMIN D [Concomitant]
  24. FISH OIL [Concomitant]
  25. CALCIUM CARBONATE [Concomitant]

REACTIONS (7)
  - ASTHENIA [None]
  - CHEST DISCOMFORT [None]
  - EPISTAXIS [None]
  - HEART RATE DECREASED [None]
  - HYPOTENSION [None]
  - SYNCOPE [None]
  - TACHYCARDIA [None]
